FAERS Safety Report 4475591-5 (Version None)
Quarter: 2004Q4

REPORT INFORMATION
  Report Type: 
  Country: None (occurrence: None)
  Receive Date: 20041012
  Receipt Date: 20040929
  Transmission Date: 20050328
  Serious: Yes (Other)
  Sender: FDA-Public Use
  Company Number: 2004073728

PATIENT
  Age: 90 Year
  Sex: Female

DRUGS (3)
  1. UNASYN [Suspect]
     Indication: BRONCHITIS
     Dosage: 6 GRAM (3 GRAM, 2 IN 1 D), INTRAVENOUS
     Route: 042
     Dates: start: 20040927, end: 20040929
  2. OMEPRAZOLE [Concomitant]
  3. ISOSORBIDE DINITRATE [Concomitant]

REACTIONS (2)
  - C-REACTIVE PROTEIN INCREASED [None]
  - PLATELET COUNT DECREASED [None]
